FAERS Safety Report 7399933-6 (Version None)
Quarter: 2011Q2

REPORT INFORMATION
  Report Type: 
  Country: None (occurrence: None)
  Receive Date: 20110407
  Receipt Date: 20110324
  Transmission Date: 20111010
  Serious: Yes (Hospitalization, Other)
  Sender: FDA-Public Use
  Company Number: US-JNJFOC-20110310848

PATIENT
  Sex: Female

DRUGS (6)
  1. DURAGESIC [Suspect]
     Indication: MULTIPLE SCLEROSIS
     Route: 062
  2. DILAUDID [Concomitant]
     Indication: PAIN
     Dosage: 2 MG ONE EVERY 4 HOURS
     Route: 048
  3. DURAGESIC [Suspect]
     Route: 062
  4. DURAGESIC [Suspect]
     Dosage: NDC 50458-094-05
     Route: 062
  5. DURAGESIC [Suspect]
     Route: 062
  6. UNKNOWN MEDICATION [Concomitant]
     Indication: PAIN
     Route: 037

REACTIONS (5)
  - UPPER LIMB FRACTURE [None]
  - DRUG ADMINISTRATION ERROR [None]
  - ABNORMAL LOSS OF WEIGHT [None]
  - FALL [None]
  - HIP FRACTURE [None]
